APPROVED DRUG PRODUCT: ANCEF IN DEXTROSE 5% IN PLASTIC CONTAINER
Active Ingredient: CEFAZOLIN SODIUM
Strength: EQ 10MG BASE/ML
Dosage Form/Route: INJECTABLE;INJECTION
Application: N050566 | Product #003
Applicant: BAXTER HEALTHCARE CORP
Approved: Jun 8, 1983 | RLD: Yes | RS: No | Type: DISCN